FAERS Safety Report 7536874-5 (Version None)
Quarter: 2011Q2

REPORT INFORMATION
  Report Type: 
  Country: None (occurrence: None)
  Receive Date: 20110609
  Receipt Date: 20110602
  Transmission Date: 20111010
  Serious: Yes (Life-Threatening, Other)
  Sender: FDA-Public Use
  Company Number: JP-ROCHE-780878

PATIENT
  Sex: Female

DRUGS (46)
  1. TOCILIZUMAB [Suspect]
     Route: 041
     Dates: start: 20081001, end: 20081001
  2. TOCILIZUMAB [Suspect]
     Route: 041
     Dates: start: 20090227
  3. TOCILIZUMAB [Suspect]
     Route: 041
     Dates: start: 20100810, end: 20100810
  4. PREDNISOLONE [Suspect]
     Route: 048
     Dates: start: 20090227, end: 20090826
  5. PREDNISOLONE [Suspect]
     Route: 048
     Dates: start: 20100507, end: 20100511
  6. BENET [Concomitant]
     Route: 048
     Dates: start: 20081127
  7. TOCILIZUMAB [Suspect]
     Route: 041
     Dates: start: 20081126, end: 20081126
  8. TOCILIZUMAB [Suspect]
     Route: 041
     Dates: start: 20100406, end: 20100406
  9. TOCILIZUMAB [Suspect]
     Route: 041
     Dates: start: 20100618, end: 20100618
  10. ALFAROL [Concomitant]
     Route: 048
  11. TOCILIZUMAB [Suspect]
     Indication: RHEUMATOID ARTHRITIS
     Route: 041
     Dates: start: 20080827, end: 20080827
  12. TOCILIZUMAB [Suspect]
     Route: 041
     Dates: start: 20081029, end: 20081029
  13. TOCILIZUMAB [Suspect]
     Route: 041
     Dates: start: 20090930, end: 20090930
  14. TOCILIZUMAB [Suspect]
     Route: 041
     Dates: start: 20100309, end: 20100309
  15. PREDNISOLONE [Suspect]
     Indication: RHEUMATOID ARTHRITIS
     Route: 048
     Dates: start: 20081002
  16. ISONIAZID [Concomitant]
     Route: 048
  17. SULFAMETHOXAZOLE [Concomitant]
     Route: 048
  18. SULFAMETHOXAZOLE [Concomitant]
     Route: 048
     Dates: start: 20100514, end: 20100826
  19. TOCILIZUMAB [Suspect]
     Route: 041
     Dates: start: 20081224, end: 20081224
  20. TOCILIZUMAB [Suspect]
     Route: 041
     Dates: start: 20090902, end: 20090902
  21. TOCILIZUMAB [Suspect]
     Route: 041
     Dates: start: 20091217, end: 20091217
  22. PREDNISOLONE [Suspect]
     Route: 048
     Dates: start: 20100811, end: 20100909
  23. SULFAMETHOXAZOLE [Concomitant]
     Route: 048
     Dates: start: 20100507, end: 20100513
  24. LANSOPRAZOLE [Concomitant]
     Route: 048
  25. HERBESSER R [Concomitant]
     Route: 048
     Dates: start: 20090127
  26. TOCILIZUMAB [Suspect]
     Route: 041
     Dates: start: 20091119, end: 20091119
  27. TOCILIZUMAB [Suspect]
     Route: 041
     Dates: start: 20100713, end: 20100713
  28. TOCILIZUMAB [Suspect]
     Route: 041
     Dates: start: 20090127, end: 20090127
  29. PREDNISOLONE [Suspect]
     Route: 048
     Dates: start: 20100618, end: 20100713
  30. NITOROL R [Concomitant]
     Route: 048
  31. NABUMETONE [Concomitant]
     Route: 048
  32. GLUCOBAY [Concomitant]
     Route: 048
  33. TOCILIZUMAB [Suspect]
     Route: 041
     Dates: start: 20100113, end: 20100113
  34. PREDNISOLONE [Suspect]
     Route: 048
     Dates: start: 20081003, end: 20090226
  35. PREDNISOLONE [Suspect]
     Route: 048
     Dates: start: 20100512, end: 20100516
  36. PREDNISOLONE [Suspect]
     Route: 048
     Dates: start: 20100517, end: 20100617
  37. PREDNISOLONE [Suspect]
     Route: 048
     Dates: start: 20100714, end: 20100810
  38. METHOTREXATE [Suspect]
     Route: 048
     Dates: start: 20100619, end: 20100826
  39. PROGRAF [Concomitant]
     Indication: RHEUMATOID ARTHRITIS
     Route: 048
     Dates: start: 20081003
  40. PLAVIX [Concomitant]
     Route: 048
  41. SIGMART [Concomitant]
     Route: 048
  42. TOCILIZUMAB [Suspect]
     Route: 041
     Dates: start: 20091026, end: 20091026
  43. TOCILIZUMAB [Suspect]
     Route: 041
     Dates: start: 20100209, end: 20100209
  44. PREDNISOLONE [Suspect]
     Route: 048
     Dates: start: 20090827, end: 20100506
  45. METHOTREXATE [Suspect]
     Indication: RHEUMATOID ARTHRITIS
     Route: 048
     Dates: start: 20100114, end: 20100505
  46. HERBESSER R [Concomitant]
     Route: 048
     Dates: start: 20090126

REACTIONS (2)
  - INTERSTITIAL LUNG DISEASE [None]
  - PNEUMOCYSTIS JIROVECI PNEUMONIA [None]
